FAERS Safety Report 7211590-8 (Version None)
Quarter: 2011Q1

REPORT INFORMATION
  Report Type: 
  Country: None (occurrence: None)
  Receive Date: 20110105
  Receipt Date: 20110103
  Transmission Date: 20110831
  Serious: No
  Sender: FDA-Public Use
  Company Number: US-PFIZER INC-2011000979

PATIENT
  Sex: Female
  Weight: 109 kg

DRUGS (7)
  1. ALBUTEROL [Concomitant]
     Dosage: UNK
     Dates: start: 20070101
  2. SERTRALINE [Concomitant]
     Dosage: UNK
     Dates: start: 20070101
  3. ZANTAC [Concomitant]
     Dosage: UNK
     Dates: start: 20070101
  4. VICODIN [Concomitant]
     Dosage: UNK
     Dates: start: 20070101
  5. DICLOFENAC [Concomitant]
     Dosage: UNK
     Dates: start: 20070101
  6. CHANTIX [Suspect]
     Indication: SMOKING CESSATION THERAPY
     Dosage: 0.5 MG, DAILY
     Route: 048
     Dates: start: 20081201, end: 20090201
  7. NEURONTIN [Concomitant]
     Dosage: UNK
     Dates: start: 20070101

REACTIONS (4)
  - NAUSEA [None]
  - BLOOD CHOLESTEROL INCREASED [None]
  - WEIGHT INCREASED [None]
  - ABNORMAL DREAMS [None]
